FAERS Safety Report 5875674-9 (Version None)
Quarter: 2008Q3

REPORT INFORMATION
  Report Type: 
  Country: None (occurrence: None)
  Receive Date: 20080909
  Receipt Date: 20080827
  Transmission Date: 20090109
  Serious: Yes (Hospitalization)
  Sender: FDA-Public Use
  Company Number: JP-ELI_LILLY_AND_COMPANY-JP200712000439

PATIENT
  Sex: Male
  Weight: 82.6 kg

DRUGS (11)
  1. ENZASTAURIN (LY317615) [Suspect]
     Indication: NON-SMALL CELL LUNG CANCER
     Dosage: 1125 MG, OTHER
     Route: 048
     Dates: start: 20071121, end: 20071121
  2. ENZASTAURIN (LY317615) [Suspect]
     Dosage: 500 MG, DAILY (1/D)
     Route: 048
     Dates: start: 20071122, end: 20071203
  3. ENZASTAURIN (LY317615) [Suspect]
     Dosage: 500 MG, DAILY (1/D)
     Route: 048
     Dates: start: 20071211
  4. PEMETREXED [Suspect]
     Indication: NON-SMALL CELL LUNG CANCER
     Dosage: 500 MG/M2, OTHER
     Route: 042
     Dates: start: 20071128
  5. HYDROXOCOBALAMIN ACETATE [Concomitant]
     Dosage: 1000 UG, OTHER
     Route: 030
     Dates: start: 20071121
  6. VITAMIN TAB [Concomitant]
     Dosage: 500 MG, DAILY (1/D)
     Route: 048
     Dates: start: 20071121
  7. AMLODIPINE BESYLATE [Concomitant]
     Dosage: UNK, UNK
  8. LIPITOR [Concomitant]
     Dosage: UNK, UNK
  9. CLARITIN [Concomitant]
     Dosage: UNK, UNK
     Dates: start: 20070328
  10. MYSER [Concomitant]
     Dosage: UNK, UNK
     Dates: start: 20070219
  11. KERATINAMIN [Concomitant]

REACTIONS (2)
  - ALANINE AMINOTRANSFERASE INCREASED [None]
  - ASPARTATE AMINOTRANSFERASE INCREASED [None]
